FAERS Safety Report 4578377-6 (Version None)
Quarter: 2005Q1

REPORT INFORMATION
  Report Type: 
  Country: None (occurrence: None)
  Receive Date: 20050202
  Receipt Date: 20050202
  Transmission Date: 20050727
  Serious: Yes (Hospitalization)
  Sender: FDA-Public Use
  Company Number: None

PATIENT
  Age: 74 Year
  Sex: Male
  Weight: 82.4 kg

DRUGS (4)
  1. ENOXAPARIN SODIUM [Suspect]
     Indication: ATRIAL FIBRILLATION
     Dosage: 50 MG SC BID
     Route: 058
     Dates: start: 20040118, end: 20040121
  2. CIPRO [Concomitant]
  3. LANSOPRAZOLE [Concomitant]
  4. METHYLPRED [Concomitant]

REACTIONS (2)
  - CHRONIC OBSTRUCTIVE AIRWAYS DISEASE EXACERBATED [None]
  - GASTROINTESTINAL HAEMORRHAGE [None]
